FAERS Safety Report 17816460 (Version 12)
Quarter: 2023Q2

REPORT INFORMATION
  Report Type: Spontaneous
  Country: US (occurrence: US)
  Receive Date: 20200522
  Receipt Date: 20230410
  Transmission Date: 20230722
  Serious: Yes (Hospitalization, Other)
  Sender: FDA-Public Use
  Company Number: US-PFIZER INC-2020108420

PATIENT
  Age: 86 Year
  Sex: Female
  Weight: 46.27 kg

DRUGS (13)
  1. BOSULIF [Suspect]
     Active Substance: BOSUTINIB MONOHYDRATE
     Indication: Chronic myeloid leukaemia
     Dosage: 200 MG, DAILY (2 TABLETS OF 100 MG)
     Route: 048
  2. BOSULIF [Suspect]
     Active Substance: BOSUTINIB MONOHYDRATE
     Indication: Prophylactic chemotherapy
     Dosage: 200 MG
     Route: 048
  3. BOSULIF [Suspect]
     Active Substance: BOSUTINIB MONOHYDRATE
     Dosage: 100 MG, DAILY
     Route: 048
     Dates: start: 20200810
  4. ASPIRIN [Concomitant]
     Active Substance: ASPIRIN
     Dosage: UNK, 1X/DAY (LOW DOSE)
  5. METOPROLOL [Concomitant]
     Active Substance: METOPROLOL
     Indication: Blood pressure abnormal
     Dosage: 25 MG, 1X/DAY
  6. TRAZODONE [Concomitant]
     Active Substance: TRAZODONE HYDROCHLORIDE
     Indication: Insomnia
     Dosage: 200 MG, 1X/DAY (AT NIGHT)
  7. TYLENOL [Concomitant]
     Active Substance: ACETAMINOPHEN
     Indication: Pain
     Dosage: 1000 MG, AS NEEDED
  8. FLOVENT HFA [Concomitant]
     Active Substance: FLUTICASONE PROPIONATE
     Indication: Hypersensitivity
     Dosage: 110 MG (ONE SPRAY IN EACH SIDE OF THE NOSE)
     Route: 045
  9. IPRATROPIUM BROMIDE [Concomitant]
     Active Substance: IPRATROPIUM BROMIDE\IPRATROPIUM BROMIDE ANHYDROUS
     Dosage: UNK, AS NEEDED (2 SPRAYS IN EACH NOSE UP TO FOUR TIMES A DAY AS NEEDED)
     Route: 045
  10. LIDOCAINE [Concomitant]
     Active Substance: LIDOCAINE
     Indication: Pain
     Dosage: UNK (RUB ON NECK AND STUFF)
  11. DICLOFENAC [Concomitant]
     Active Substance: DICLOFENAC
     Indication: Neck pain
     Dosage: UNK
  12. GAVISCON [ALGELDRATE;ALGINIC ACID;MAGNESIUM TRISILICATE;SODIUM BICARBO [Concomitant]
     Indication: Antacid therapy
     Dosage: UNK, 4X/DAY (TOOK UP TO FOUR TEASPOONS FOUR TIMES A DAY)
  13. GAVISCON [ALGELDRATE;ALGINIC ACID;MAGNESIUM TRISILICATE;SODIUM BICARBO [Concomitant]
     Dosage: UNK (2-3 TIMES A DAY )

REACTIONS (16)
  - Oesophageal haemorrhage [Recovered/Resolved]
  - Gastrooesophageal reflux disease [Recovered/Resolved]
  - Dyspepsia [Recovered/Resolved]
  - Illness [Unknown]
  - Fatigue [Not Recovered/Not Resolved]
  - Eating disorder [Unknown]
  - Feeling abnormal [Unknown]
  - Weight decreased [Recovering/Resolving]
  - Weight abnormal [Unknown]
  - Asthenia [Not Recovered/Not Resolved]
  - Headache [Not Recovered/Not Resolved]
  - Somnolence [Unknown]
  - Hypoacusis [Unknown]
  - Loss of personal independence in daily activities [Unknown]
  - Renal disorder [Unknown]
  - Blood creatinine increased [Unknown]

NARRATIVE: CASE EVENT DATE: 20200601
